FAERS Safety Report 16549713 (Version 1)
Quarter: 2019Q3

REPORT INFORMATION
  Report Type: Spontaneous
  Country: CA (occurrence: CA)
  Receive Date: 20190710
  Receipt Date: 20190710
  Transmission Date: 20191004
  Serious: Yes (Hospitalization, Other)
  Sender: FDA-Public Use
  Company Number: CA-AUROBINDO-AUR-APL-2019-037787

PATIENT

DRUGS (10)
  1. CLONAZEPAM. [Suspect]
     Active Substance: CLONAZEPAM
     Indication: PRODUCT USED FOR UNKNOWN INDICATION
     Dosage: 0.5 MILLIGRAM, ONCE A DAY
     Route: 065
  2. PHENYTOIN. [Suspect]
     Active Substance: PHENYTOIN
     Indication: PRODUCT USED FOR UNKNOWN INDICATION
     Dosage: 300 MILLIGRAM, ONCE A DAY
     Route: 065
  3. QUETIAPINE. [Suspect]
     Active Substance: QUETIAPINE
     Dosage: 750 MILLIGRAM, ONCE A DAY
     Route: 048
  4. QUETIAPINE. [Suspect]
     Active Substance: QUETIAPINE
     Dosage: 800 MILLIGRAM, ONCE A DAY
     Route: 048
  5. SERTRALINE [Suspect]
     Active Substance: SERTRALINE HYDROCHLORIDE
     Dosage: 150 MILLIGRAM, ONCE A DAY
     Route: 065
  6. DIAZEPAM. [Suspect]
     Active Substance: DIAZEPAM
     Indication: PRODUCT USED FOR UNKNOWN INDICATION
     Dosage: 10 MILLIGRAM, ONCE A DAY
     Route: 065
  7. QUETIAPINE. [Suspect]
     Active Substance: QUETIAPINE
     Indication: PRODUCT USED FOR UNKNOWN INDICATION
     Dosage: 900 MILLIGRAM, ONCE A DAY
     Route: 048
  8. CLONAZEPAM. [Suspect]
     Active Substance: CLONAZEPAM
     Indication: PRODUCT USED FOR UNKNOWN INDICATION
     Dosage: 2.0 MILLIGRAM, ONCE A DAY
     Route: 065
  9. CLOZAPINE. [Concomitant]
     Active Substance: CLOZAPINE
     Indication: PRODUCT USED FOR UNKNOWN INDICATION
     Dosage: UNK
     Route: 065
  10. SERTRALINE [Suspect]
     Active Substance: SERTRALINE HYDROCHLORIDE
     Indication: PRODUCT USED FOR UNKNOWN INDICATION
     Dosage: 200 MILLIGRAM
     Route: 065

REACTIONS (18)
  - Hypotension [Recovered/Resolved]
  - Tardive dyskinesia [Recovered/Resolved]
  - Arthralgia [Recovered/Resolved]
  - Hallucination [Recovered/Resolved]
  - Trismus [Recovered/Resolved]
  - Muscle spasms [Recovered/Resolved]
  - Somnambulism [Recovered/Resolved]
  - Speech disorder [Recovered/Resolved]
  - Temporomandibular joint syndrome [Recovered/Resolved]
  - Pain in jaw [Recovered/Resolved]
  - Agranulocytosis [Recovered/Resolved]
  - Oromandibular dystonia [Recovered/Resolved]
  - Paraesthesia [Recovered/Resolved]
  - Akathisia [Recovered/Resolved]
  - Dysarthria [Recovered/Resolved]
  - Incoherent [Recovered/Resolved]
  - Pain [Recovered/Resolved]
  - Dystonia [Recovered/Resolved]
